FAERS Safety Report 4336216-2 (Version None)
Quarter: 2004Q2

REPORT INFORMATION
  Report Type: 
  Country: None (occurrence: None)
  Receive Date: 20040406
  Receipt Date: 20040405
  Transmission Date: 20050107
  Serious: Yes (Hospitalization)
  Sender: FDA-Public Use
  Company Number: 2004-UK-00293UK

PATIENT
  Age: 55 Year
  Sex: Female

DRUGS (4)
  1. AGGRENOX [Suspect]
     Indication: CEREBROVASCULAR ACCIDENT PROPHYLAXIS
     Dosage: 2 TABLETS DAILY; PO
     Route: 048
     Dates: start: 20040124, end: 20040125
  2. CLOPIDOGREL BISULFATE [Suspect]
     Indication: CEREBROVASCULAR ACCIDENT PROPHYLAXIS
     Dosage: 1 TABLET DAILY; PO
     Route: 048
     Dates: start: 20040124, end: 20040125
  3. ASPIRIN [Suspect]
     Indication: CEREBROVASCULAR ACCIDENT PROPHYLAXIS
     Dosage: 1 TABLET DAILY; PO
     Route: 048
     Dates: start: 20040124, end: 20040125
  4. MICARDIS [Suspect]
     Indication: CEREBROVASCULAR ACCIDENT PROPHYLAXIS
     Dosage: 2 TABLETS DAILY; PO
     Route: 048
     Dates: start: 20040124, end: 20040125

REACTIONS (3)
  - EYE PAIN [None]
  - HEADACHE [None]
  - NAUSEA [None]
